FAERS Safety Report 23505412 (Version 1)
Quarter: 2024Q1

REPORT INFORMATION
  Report Type: Spontaneous
  Country: US (occurrence: US)
  Receive Date: 20240209
  Receipt Date: 20240209
  Transmission Date: 20240410
  Serious: No
  Sender: FDA-Public Use
  Company Number: US-EYEPOINT PHARMACEUTICALS, INC.-US-EYP-23-00228

PATIENT
  Sex: Female

DRUGS (2)
  1. YUTIQ [Suspect]
     Active Substance: FLUOCINOLONE ACETONIDE
     Indication: Chorioretinitis
     Dosage: IN THE RIGHT EYE/OD
     Route: 031
     Dates: start: 20230123
  2. YUTIQ [Suspect]
     Active Substance: FLUOCINOLONE ACETONIDE
     Dosage: IN THE LEFT EYE/OS
     Route: 031
     Dates: start: 20221010

REACTIONS (3)
  - Eye swelling [Unknown]
  - Drug delivery system issue [Unknown]
  - Product dose omission issue [Unknown]
